FAERS Safety Report 5583148-8 (Version None)
Quarter: 2008Q1

REPORT INFORMATION
  Report Type: 
  Country: None (occurrence: None)
  Receive Date: 20080103
  Receipt Date: 20080103
  Transmission Date: 20080703
  Serious: Yes (Other)
  Sender: FDA-Public Use
  Company Number: None

PATIENT
  Age: 51 Year
  Sex: Female
  Weight: 90.7194 kg

DRUGS (2)
  1. PURALUBE   UNKNOWN    FOUGERA, MELVILLE, NY [Suspect]
     Dosage: SEVERAL DEOPS IN EACH EYE  ONCE  INTRAOCULAR
     Route: 031
     Dates: start: 20071214, end: 20071214
  2. GENERAL ANESTHESIA [Concomitant]

REACTIONS (3)
  - EYE PRURITUS [None]
  - EYE SWELLING [None]
  - VISION BLURRED [None]
